FAERS Safety Report 9355555 (Version 1)
Quarter: 2013Q2

REPORT INFORMATION
  Report Type: Spontaneous
  Country: US (occurrence: US)
  Receive Date: 20130619
  Receipt Date: 20130619
  Transmission Date: 20140414
  Serious: Yes (Other)
  Sender: FDA-Public Use
  Company Number: US-PFIZER INC-2013182647

PATIENT
  Sex: Female

DRUGS (1)
  1. ZOLOFT [Suspect]
     Indication: BIPOLAR I DISORDER
     Dosage: UNK
     Dates: start: 1991

REACTIONS (5)
  - Suicidal behaviour [Unknown]
  - Drug dependence [Unknown]
  - Depression [Unknown]
  - Feeling abnormal [Unknown]
  - Off label use [Unknown]
